FAERS Safety Report 21897130 (Version 1)
Quarter: 2023Q1

REPORT INFORMATION
  Report Type: Report from Study
  Country: US (occurrence: US)
  Receive Date: 20230123
  Receipt Date: 20230123
  Transmission Date: 20230417
  Serious: Yes (Death, Life-Threatening, Hospitalization, Other)
  Sender: FDA-Public Use
  Company Number: US-PFIZER INC-202300030730

PATIENT

DRUGS (3)
  1. KETAMINE HYDROCHLORIDE [Suspect]
     Active Substance: KETAMINE HYDROCHLORIDE
     Indication: Status asthmaticus
     Dosage: 0.32 MG/KG, AVERAGE INITIAL DOSE
     Route: 040
  2. KETAMINE HYDROCHLORIDE [Suspect]
     Active Substance: KETAMINE HYDROCHLORIDE
     Dosage: 0.58 MG/KG/HR ,AVERAGE MEAN DOSE
     Route: 040
  3. KETAMINE HYDROCHLORIDE [Suspect]
     Active Substance: KETAMINE HYDROCHLORIDE
     Dosage: 0.76MG/KG/HR AVERAGE, MAX DOSE
     Route: 040

REACTIONS (1)
  - Increased bronchial secretion [Fatal]
